FAERS Safety Report 7446223-9 (Version None)
Quarter: 2011Q2

REPORT INFORMATION
  Report Type: 
  Country: None (occurrence: None)
  Receive Date: 20110429
  Receipt Date: 20110421
  Transmission Date: 20111010
  Serious: Yes (Other)
  Sender: FDA-Public Use
  Company Number: US-JNJFOC-20110409924

PATIENT
  Sex: Female

DRUGS (1)
  1. NUCYNTA [Suspect]
     Indication: ANALGESIC THERAPY
     Route: 048

REACTIONS (3)
  - RESPIRATORY DEPRESSION [None]
  - CHEST DISCOMFORT [None]
  - TACHYCARDIA [None]
